FAERS Safety Report 8115945-9 (Version None)
Quarter: 2012Q1

REPORT INFORMATION
  Report Type: 
  Country: None (occurrence: None)
  Receive Date: 20120206
  Receipt Date: 20120125
  Transmission Date: 20120608
  Serious: Yes (Hospitalization, Other)
  Sender: FDA-Public Use
  Company Number: FR-ROCHE-765966

PATIENT
  Sex: Female
  Weight: 37.5 kg

DRUGS (24)
  1. DACTINOMYCIN [Suspect]
     Indication: SARCOMA METASTATIC
     Dosage: DOSAGE FORM: 1.5MG/M2. LAST DOSE PRIOR TO SAE: 11 JULY 2011
     Route: 042
  2. ANDROCUR [Concomitant]
     Dosage: TOTAL DAILY DOSE: 1/2CP
  3. AVASTIN [Suspect]
     Indication: SARCOMA METASTATIC
     Dosage: FREQUENCY: DAY 1. DOSAGE FORM: 7.5 MG/KG.LAST DOSE PRIOR TO SAE: 11 JULY 2011
     Route: 042
  4. DOXORUBICIN HCL [Suspect]
     Indication: SARCOMA METASTATIC
     Dosage: FREQUENCY: DAY 1 AND DAY 2. DOSAGE FORM: 30 MG/M2.
     Route: 042
  5. PREDNISOLONE SODIUM [Concomitant]
     Dates: start: 20110309, end: 20110315
  6. ORANOR [Concomitant]
     Dosage: TDD: 4 DROPSX 6/ DAY
     Dates: start: 20110312, end: 20110402
  7. ZOLOFT [Concomitant]
  8. NORDETTE-21 [Concomitant]
     Dosage: DOSE: 1CP DAILY
  9. ZOFRAN [Concomitant]
  10. LOVENOX [Concomitant]
  11. CLONAZEPAM [Concomitant]
     Dosage: TDD: 12 DROPS
  12. TRANXENE [Concomitant]
     Dates: start: 20110312, end: 20110312
  13. NEURONTIN [Concomitant]
  14. VINCRISTINE [Suspect]
     Indication: SARCOMA METASTATIC
     Dosage: C1, C2, C3. FORM: 1.5 MG/M2.LAST DOSE PRIOR TO SAE: 11 JULY 2011
     Route: 042
  15. TRAMADOL HCL [Concomitant]
     Dates: start: 20110309, end: 20110313
  16. POLYETHYLENE GLYCOL [Concomitant]
  17. POLYETHYLENE GLYCOL [Concomitant]
  18. METHOTREXATE SODIUM [Concomitant]
     Dosage: TOTAL DAILY DOSE: 4 SACHETS
  19. ACETAMINOPHEN [Concomitant]
     Dosage: TDD: UK
  20. PHOSPHONEUROS [Concomitant]
  21. FORLAX (FRANCE) [Concomitant]
     Dates: start: 20110305
  22. IFOSFAMIDE [Suspect]
     Indication: SARCOMA METASTATIC
     Dosage: FREQUENCY: DAY 1- DAY 2. DOSAGE FORM: 3 GR/M2.LAST DOSE PRIOR TO SAE: 12 JULY 2011
     Route: 042
  23. ZOVIRAX [Concomitant]
  24. LANSOPRAZOLE [Concomitant]

REACTIONS (5)
  - VOMITING [None]
  - FEBRILE NEUTROPENIA [None]
  - FEBRILE BONE MARROW APLASIA [None]
  - MUCOSAL INFLAMMATION [None]
  - WEIGHT DECREASED [None]
